FAERS Safety Report 13821570 (Version 4)
Quarter: 2018Q2

REPORT INFORMATION
  Report Type: Spontaneous
  Country: US (occurrence: US)
  Receive Date: 20170801
  Receipt Date: 20180418
  Transmission Date: 20180711
  Serious: Yes (Hospitalization, Other)
  Sender: FDA-Public Use
  Company Number: US-009507513-1707USA013114

PATIENT
  Sex: Female
  Weight: 80.27 kg

DRUGS (1)
  1. NUVARING [Suspect]
     Active Substance: ETHINYL ESTRADIOL\ETONOGESTREL
     Indication: CONTRACEPTION
     Dosage: 1 RING EVERY 3 WEEKS, 1 WEEK RING FREE
     Route: 067
     Dates: start: 201312, end: 20140730

REACTIONS (9)
  - Haemorrhagic disorder [Unknown]
  - Hyperhidrosis [Unknown]
  - Stress [Unknown]
  - JC polyomavirus test positive [Unknown]
  - Cough [Unknown]
  - Swelling [Unknown]
  - Pulmonary embolism [Unknown]
  - Thrombosis [Unknown]
  - Nausea [Unknown]

NARRATIVE: CASE EVENT DATE: 201407
